FAERS Safety Report 21769776 (Version 1)
Quarter: 2022Q4

REPORT INFORMATION
  Report Type: Other
  Country: CN (occurrence: None)
  Receive Date: 20221223
  Receipt Date: 20221223
  Transmission Date: 20230113
  Serious: Yes (Other)
  Sender: FDA-Public Use
  Company Number: CN-ROCHE-3249276

PATIENT

DRUGS (3)
  1. TRASTUZUMAB [Suspect]
     Active Substance: TRASTUZUMAB
     Indication: Colorectal cancer
     Dosage: LOADING DOSE
     Route: 041
  2. TRASTUZUMAB [Suspect]
     Active Substance: TRASTUZUMAB
     Dosage: MAINTAINENCE DOSE
     Route: 041
  3. PYROTINIB [Suspect]
     Active Substance: PYROTINIB
     Indication: Colorectal cancer
     Dosage: IN 21-DAY TREATMENT CYCLES
     Route: 048

REACTIONS (1)
  - Urine output decreased [Unknown]
